FAERS Safety Report 9879590 (Version 3)
Quarter: 2014Q1

REPORT INFORMATION
  Report Type: Other
  Country: GE (occurrence: GE)
  Receive Date: 20140206
  Receipt Date: 20140312
  Transmission Date: 20141002
  Serious: Yes (Other)
  Sender: FDA-Public Use
  Company Number: GE-RB-061120-13

PATIENT
  Age: 28 Year
  Sex: Female

DRUGS (5)
  1. SUBUTEX [Suspect]
     Indication: PRODUCT USED FOR UNKNOWN INDICATION
     Dosage: DOSING DETAILS UNKNOWN
     Route: 042
     Dates: start: 2004, end: 2011
  2. SUBOXONE TABLET [Suspect]
     Route: 060
     Dates: start: 20110502, end: 20110509
  3. SUBOXONE TABLET [Suspect]
     Indication: DRUG DEPENDENCE
     Route: 060
     Dates: start: 20110510, end: 20110516
  4. SUBOXONE TABLET [Suspect]
     Dosage: TOOK ONE 2MG AND ONE 8 MG TABLET DAILY
     Route: 060
     Dates: start: 20110517, end: 20110606
  5. CROCODILE [Suspect]
     Indication: PRODUCT USED FOR UNKNOWN INDICATION
     Dosage: DOSING DETAILS UNKNOWN
     Route: 065
     Dates: start: 2010, end: 201106

REACTIONS (10)
  - Hepatitis C [Unknown]
  - Intentional drug misuse [Recovered/Resolved]
  - Drug abuse [Recovered/Resolved]
  - Pyrexia [Recovered/Resolved]
  - Depression [Recovered/Resolved]
  - Vaginal discharge [Recovered/Resolved]
  - Anxiety [Recovered/Resolved]
  - Dysmenorrhoea [Recovered/Resolved]
  - Nausea [Recovered/Resolved]
  - Diarrhoea [Recovered/Resolved]
